FAERS Safety Report 5380509-7 (Version None)
Quarter: 2007Q3

REPORT INFORMATION
  Report Type: 
  Country: None (occurrence: None)
  Receive Date: 20070703
  Receipt Date: 20070622
  Transmission Date: 20080115
  Serious: Yes (Other)
  Sender: FDA-Public Use
  Company Number: 16860

PATIENT
  Age: 45 Year
  Sex: Female

DRUGS (1)
  1. ANZATAX [Suspect]
     Indication: OVARIAN CANCER METASTATIC
     Dosage: 300 MG PER_CYCLE IV
     Route: 042
     Dates: start: 20070524, end: 20070524

REACTIONS (5)
  - DYSPNOEA [None]
  - INFUSION RELATED REACTION [None]
  - RASH [None]
  - SCOTOMA [None]
  - SENSE OF OPPRESSION [None]
